FAERS Safety Report 12191260 (Version 1)
Quarter: 2016Q1

REPORT INFORMATION
  Report Type: Spontaneous
  Country: US (occurrence: MX)
  Receive Date: 20160318
  Receipt Date: 20160318
  Transmission Date: 20160526
  Serious: Yes (Death, Other)
  Sender: FDA-Public Use
  Company Number: MX-FRI-1000083236

PATIENT
  Age: 82 Year
  Sex: Female
  Weight: 80 kg

DRUGS (9)
  1. CLEXANE [Concomitant]
     Active Substance: ENOXAPARIN SODIUM
     Indication: COAGULOPATHY
     Dosage: 60 MG
     Route: 058
     Dates: start: 20160125, end: 20160220
  2. AMBROXOL [Concomitant]
     Active Substance: AMBROXOL
     Indication: LUNG DISORDER
     Route: 055
     Dates: start: 20160125, end: 20160220
  3. CIPROFLOXACIN. [Concomitant]
     Active Substance: CIPROFLOXACIN
     Indication: PNEUMONIA
     Dosage: 400 MG
     Route: 042
     Dates: start: 20160219, end: 20160220
  4. PULMICORT TURBUHALER [Concomitant]
     Active Substance: BUDESONIDE
     Indication: LUNG DISORDER
     Route: 055
     Dates: start: 20160125, end: 20160220
  5. FUROSEMIDE. [Concomitant]
     Active Substance: FUROSEMIDE
     Indication: DIURETIC THERAPY
     Dosage: 80 MG
     Route: 042
     Dates: start: 201601, end: 20160220
  6. OMEPRAZOL [Concomitant]
     Active Substance: OMEPRAZOLE
     Indication: GASTRIC DISORDER
     Dosage: 40 MG
     Route: 042
     Dates: start: 20160125, end: 20160220
  7. CEFTAROLINE FOSAMIL [Suspect]
     Active Substance: CEFTAROLINE FOSAMIL
     Indication: PNEUMONIA
     Dosage: 1 G
     Route: 042
     Dates: start: 20160219, end: 20160220
  8. METOPROLOL. [Concomitant]
     Active Substance: METOPROLOL
     Indication: HYPERTENSION
     Dosage: 100 MG
     Route: 048
     Dates: start: 20160215, end: 20160220
  9. COMBIVENT [Concomitant]
     Active Substance: ALBUTEROL SULFATE\IPRATROPIUM BROMIDE
     Indication: LUNG DISORDER
     Route: 055
     Dates: start: 20160125, end: 20160220

REACTIONS (4)
  - Product use issue [Unknown]
  - Haemoglobin decreased [Unknown]
  - Renal failure [Fatal]
  - Off label use [Unknown]

NARRATIVE: CASE EVENT DATE: 20160219
